FAERS Safety Report 9269995 (Version 2)
Quarter: 2013Q2

REPORT INFORMATION
  Report Type: Spontaneous
  Country: US (occurrence: US)
  Receive Date: 20130502
  Receipt Date: 20130521
  Transmission Date: 20140414
  Serious: Yes (Other)
  Sender: FDA-Public Use
  Company Number: US-BRACCO-009393

PATIENT
  Age: 63 Year
  Sex: Female

DRUGS (1)
  1. ISOVUE 300 [Suspect]
     Indication: COMPUTERISED TOMOGRAM
     Route: 042
     Dates: start: 20130425, end: 20130425

REACTIONS (1)
  - Anaphylactic reaction [Unknown]
